FAERS Safety Report 5515571-1 (Version None)
Quarter: 2007Q4

REPORT INFORMATION
  Report Type: 
  Country: None (occurrence: None)
  Receive Date: 20071113
  Receipt Date: 20070702
  Transmission Date: 20080405
  Serious: No
  Sender: FDA-Public Use
  Company Number: A0654480A

PATIENT
  Age: 59 Year
  Sex: Male
  Weight: 104.5 kg

DRUGS (8)
  1. COREG [Suspect]
     Dosage: 25MG TWICE PER DAY
     Route: 048
     Dates: start: 20061101, end: 20070524
  2. LISINOPRIL [Concomitant]
  3. K-DUR 10 [Concomitant]
  4. VITAMINS [Concomitant]
  5. LIPITOR [Concomitant]
  6. LASIX [Concomitant]
  7. CLARITIN [Concomitant]
  8. VITAMIN D [Concomitant]

REACTIONS (3)
  - ASTHENIA [None]
  - FATIGUE [None]
  - IRRITABILITY [None]
